FAERS Safety Report 20379435 (Version 2)
Quarter: 2022Q1

REPORT INFORMATION
  Report Type: Report from Study
  Country: US (occurrence: US)
  Receive Date: 20220126
  Receipt Date: 20220217
  Transmission Date: 20220423
  Serious: Yes (Other)
  Sender: FDA-Public Use
  Company Number: US-BAYER-2022A009612

PATIENT
  Age: 62 Year
  Sex: Female

DRUGS (1)
  1. STIVARGA [Suspect]
     Active Substance: REGORAFENIB
     Indication: Colon cancer
     Dosage: 160 MG, QD, ON DAYS 1 THROUGH 21 EVERY 28 DAYS
     Route: 048
     Dates: start: 20211215

REACTIONS (7)
  - Neuropathy peripheral [Not Recovered/Not Resolved]
  - Nail infection [None]
  - Pain in extremity [None]
  - Peripheral swelling [None]
  - Nausea [Not Recovered/Not Resolved]
  - Hangnail [None]
  - Product dose omission issue [None]
